FAERS Safety Report 19222717 (Version 2)
Quarter: 2021Q2

REPORT INFORMATION
  Report Type: Report from Study
  Country: CA (occurrence: CA)
  Receive Date: 20210506
  Receipt Date: 20210617
  Transmission Date: 20210717
  Serious: Yes (Other)
  Sender: FDA-Public Use
  Company Number: CA-HLS-202000106

PATIENT
  Age: 68 Year
  Sex: Female
  Weight: 84 kg

DRUGS (3)
  1. LYNPARZA [Concomitant]
     Active Substance: OLAPARIB
     Indication: OVARIAN CANCER
     Dosage: UNKNOWN
     Route: 048
  2. CLOZARIL [Suspect]
     Active Substance: CLOZAPINE
     Route: 048
     Dates: start: 20130607
  3. LYNPARZA [Concomitant]
     Active Substance: OLAPARIB
     Indication: BREAST CANCER
     Dosage: UNKNOWN
     Route: 048

REACTIONS (5)
  - Neutrophilia [Unknown]
  - Ovarian cancer [Unknown]
  - Breast cancer [Unknown]
  - Leukocytosis [Unknown]
  - Neutropenia [Unknown]

NARRATIVE: CASE EVENT DATE: 20190906
